FAERS Safety Report 8819837 (Version 2)
Quarter: 2013Q2

REPORT INFORMATION
  Report Type: Spontaneous
  Country: US (occurrence: US)
  Receive Date: 20121001
  Receipt Date: 20130429
  Transmission Date: 20140414
  Serious: Yes (Other)
  Sender: FDA-Public Use
  Company Number: US-BAYER-2012-100242

PATIENT
  Age: 70 Year
  Sex: Female
  Weight: 45 kg

DRUGS (7)
  1. BAYER ASPIRIN REGIMEN REGULAR 325 MG STRENGTH [Suspect]
     Indication: ISCHAEMIC HEART DISEASE PROPHYLAXIS
     Dosage: UNK, QD
     Route: 048
     Dates: start: 20120730, end: 20120921
  2. BAYER ASPIRIN REGIMEN REGULAR 325 MG STRENGTH [Suspect]
     Indication: THROMBOSIS PROPHYLAXIS
     Dosage: 1 DF, QD
  3. COUMADIN [Concomitant]
     Dosage: UNK
     Dates: start: 20120612, end: 20120729
  4. DILTIAZEM ER [Concomitant]
  5. OMEGA 3 [Concomitant]
     Dosage: 700 MG, 1-2 A DAY
  6. VITAMIN D3 [Concomitant]
     Dosage: 200 IU, QD
  7. VITAMIN E [Concomitant]
     Dosage: 400 IU, QD

REACTIONS (5)
  - Retinal haemorrhage [Recovered/Resolved]
  - Retinal tear [Recovered/Resolved]
  - Retinal haemorrhage [Recovered/Resolved]
  - Vitreous floaters [Not Recovered/Not Resolved]
  - Visual impairment [None]
